FAERS Safety Report 8535095-7 (Version None)
Quarter: 2012Q3

REPORT INFORMATION
  Report Type: 
  Country: None (occurrence: None)
  Receive Date: 20120724
  Receipt Date: 20120718
  Transmission Date: 20120928
  Serious: Yes (Other)
  Sender: FDA-Public Use
  Company Number: US-PFIZER INC-2012174196

PATIENT
  Sex: Female
  Weight: 111.11 kg

DRUGS (11)
  1. CLONIDINE [Concomitant]
     Dosage: 0.2 MG, 1X/DAY
  2. TAMSULOSIN [Concomitant]
     Dosage: 0.4 MG, 1X/DAY
  3. LEVEMIR [Concomitant]
     Dosage: UNK, 1X/DAY
  4. NOVOLOG [Concomitant]
     Dosage: UNK, 4X/DAY
  5. COLACE [Concomitant]
     Dosage: 100 MG, 1X/DAY
  6. ZYVOX [Suspect]
     Indication: WOUND INFECTION STAPHYLOCOCCAL
     Dosage: 600 MG, 2X/DAY
     Route: 048
     Dates: start: 20120625, end: 20120716
  7. ALLOPURINOL [Concomitant]
     Dosage: 100 MG, 1X/DAY
  8. SYNTHROID [Concomitant]
     Dosage: 75 UG, 1X/DAY
  9. NIFEDIPINE [Concomitant]
     Dosage: 30 MG, 1X/DAY
  10. NYSTATIN [Concomitant]
     Dosage: UNK, 2X/DAY
     Route: 061
  11. ASPIRIN [Concomitant]
     Dosage: 81 MG, UNK

REACTIONS (2)
  - GLOSSODYNIA [None]
  - AGEUSIA [None]
